FAERS Safety Report 9422157 (Version 2)
Quarter: 2014Q1

REPORT INFORMATION
  Report Type: Spontaneous
  Country: US (occurrence: US)
  Receive Date: 20130726
  Receipt Date: 20140108
  Transmission Date: 20141002
  Serious: Yes (Hospitalization)
  Sender: FDA-Public Use
  Company Number: US-B.I. PHARMACEUTICALS,INC./RIDGEFIELD-2013-BI-21801BP

PATIENT
  Sex: Male
  Weight: 90.72 kg

DRUGS (11)
  1. PRADAXA [Suspect]
     Indication: ANTICOAGULANT THERAPY
     Dosage: 300 MG
     Route: 048
     Dates: start: 20110408, end: 20121007
  2. PRADAXA [Suspect]
     Indication: ATRIAL FIBRILLATION
  3. ASPIRIN [Concomitant]
     Dosage: 81 MG
     Route: 048
  4. CARVEDILOL [Concomitant]
     Dosage: 6.25 MG
     Route: 048
  5. LASIX [Concomitant]
     Dosage: 40 MG
     Route: 048
  6. LEVOTHYROXINE [Concomitant]
     Dosage: 175 MCG
     Route: 048
  7. LIPITOR [Concomitant]
     Dosage: 10 MG
     Route: 048
  8. LISINOPRIL [Concomitant]
     Dosage: 5 MG
     Route: 048
  9. NIASPAN [Concomitant]
     Dosage: 500 MG
     Route: 048
  10. POTASSIUM [Concomitant]
     Dosage: 20 MEQ
     Route: 048
  11. SPIRIVA [Concomitant]
     Dosage: 18 MCG
     Route: 055

REACTIONS (2)
  - Upper gastrointestinal haemorrhage [Unknown]
  - Iron deficiency anaemia [Unknown]
